FAERS Safety Report 26050274 (Version 1)
Quarter: 2025Q4

REPORT INFORMATION
  Report Type: Spontaneous
  Country: EU (occurrence: EU)
  Receive Date: 20251116
  Receipt Date: 20251116
  Transmission Date: 20260117
  Serious: Yes (Hospitalization, Other)
  Sender: SANOFI AVENTIS
  Company Number: EU-EMA-DD-20251017-7482679-110537

PATIENT
  Age: 55 Year
  Sex: Female

DRUGS (4)
  1. TAXOTERE [Suspect]
     Active Substance: DOCETAXEL
     Indication: Product used for unknown indication
     Dosage: UNK, QCY
     Dates: start: 201905
  2. TAXOTERE [Suspect]
     Active Substance: DOCETAXEL
     Dosage: UNK UNK, QCY
     Dates: start: 201906
  3. NINTEDANIB [Suspect]
     Active Substance: NINTEDANIB
     Indication: Lung adenocarcinoma stage IV
     Dosage: UNK, QCY
     Dates: start: 201905
  4. NINTEDANIB [Suspect]
     Active Substance: NINTEDANIB
     Dosage: UNK, QCY
     Dates: start: 201905

REACTIONS (13)
  - Chromosome analysis abnormal [Unknown]
  - Malignant neoplasm progression [Unknown]
  - Metastases to liver [Unknown]
  - Pulmonary embolism [Unknown]
  - Haemoptysis [Unknown]
  - Liver function test increased [Unknown]
  - Drug hypersensitivity [Unknown]
  - Cough [Unknown]
  - Dyspnoea [Unknown]
  - Dyspnoea [Unknown]
  - Flushing [Unknown]
  - Vomiting [Unknown]
  - Cough [Unknown]

NARRATIVE: CASE EVENT DATE: 20190101
